FAERS Safety Report 7213409-8 (Version None)
Quarter: 2010Q4

REPORT INFORMATION
  Report Type: 
  Country: None (occurrence: None)
  Receive Date: 20101126
  Receipt Date: 20100226
  Transmission Date: 20110411
  Serious: Yes (Other)
  Sender: FDA-Public Use
  Company Number: WAES 0708USA02986

PATIENT
  Age: 69 Year
  Sex: Male
  Weight: 78.9259 kg

DRUGS (3)
  1. FOSAMAX [Suspect]
     Indication: PROSTATE CANCER RECURRENT
     Dosage: PO
     Route: 048
     Dates: start: 20020501, end: 20050203
  2. ZOMETA [Suspect]
     Indication: PROSTATE CANCER RECURRENT
     Dosage: IV
     Route: 042
     Dates: start: 20021115, end: 20040401
  3. AMBIEN [Concomitant]

REACTIONS (15)
  - ASTHENIA [None]
  - HEADACHE [None]
  - INFECTION [None]
  - METASTASIS [None]
  - MYALGIA [None]
  - OSTEOMYELITIS [None]
  - OSTEONECROSIS [None]
  - OSTEOPENIA [None]
  - OTITIS EXTERNA [None]
  - OTORRHOEA [None]
  - PERINEAL PAIN [None]
  - PHARYNGEAL OEDEMA [None]
  - TOOTH INFECTION [None]
  - VIRAL INFECTION [None]
  - WOUND DEHISCENCE [None]
